FAERS Safety Report 8387188-5 (Version None)
Quarter: 2012Q2

REPORT INFORMATION
  Report Type: 
  Country: None (occurrence: None)
  Receive Date: 20120525
  Receipt Date: 20120515
  Transmission Date: 20120825
  Serious: Yes (Hospitalization, Disabling)
  Sender: FDA-Public Use
  Company Number: FR-ROCHE-1043325

PATIENT
  Sex: Female
  Weight: 45 kg

DRUGS (5)
  1. DACTINOMYCIN [Suspect]
     Indication: NEOPLASM MALIGNANT
     Dosage: LAST DOSE PRIOR TO SAE : 29/MAR/2012
     Route: 042
     Dates: start: 20120119
  2. VINCRISTINE [Suspect]
     Indication: NEOPLASM MALIGNANT
     Dosage: LAST DOSE PRIOR TO SAE 28/MAR/2012
     Route: 042
     Dates: start: 20120119
  3. DOXORUBICIN HCL [Suspect]
     Indication: NEOPLASM MALIGNANT
     Dosage: LAST DOSE PRIOR TO SAE 29/MAR/2012
     Route: 042
     Dates: start: 20120119
  4. AVASTIN [Suspect]
     Indication: NEOPLASM MALIGNANT
     Dosage: LAST DOSE PRIOR TO SAE: 22/MAR/2012
     Route: 042
     Dates: start: 20120119
  5. IFOSFAMIDE [Suspect]
     Indication: NEOPLASM MALIGNANT
     Dosage: LAST DOSE PRIOR TO SAE 29/MAR/2012
     Route: 042
     Dates: start: 20120119

REACTIONS (3)
  - FEBRILE NEUTROPENIA [None]
  - FEBRILE BONE MARROW APLASIA [None]
  - MALNUTRITION [None]
